FAERS Safety Report 4489147-1 (Version None)
Quarter: 2004Q4

REPORT INFORMATION
  Report Type: 
  Country: None (occurrence: None)
  Receive Date: 20041029
  Receipt Date: 20041021
  Transmission Date: 20050328
  Serious: Yes (Hospitalization)
  Sender: FDA-Public Use
  Company Number: US-MERCK-0410USA03398

PATIENT
  Age: 73 Year
  Sex: Male

DRUGS (5)
  1. VIOXX [Suspect]
     Indication: POST PROCEDURAL PAIN
     Route: 048
  2. LOPRESSOR [Concomitant]
     Route: 065
  3. PREVACID [Concomitant]
     Route: 065
  4. CHOLESTYRAMINE RESIN [Concomitant]
     Route: 065
  5. DESIPRAMINE HYDROCHLORIDE [Suspect]
     Route: 065

REACTIONS (4)
  - ADVERSE DRUG REACTION [None]
  - AMNESIA [None]
  - BLOOD SODIUM DECREASED [None]
  - CEREBROVASCULAR ACCIDENT [None]
